FAERS Safety Report 19190479 (Version 1)
Quarter: 2021Q2

REPORT INFORMATION
  Report Type: Spontaneous
  Country: JP (occurrence: JP)
  Receive Date: 20210428
  Receipt Date: 20210428
  Transmission Date: 20210717
  Serious: Yes (Hospitalization)
  Sender: FDA-Public Use
  Company Number: JP-MYLANLABS-2021M1013315

PATIENT
  Age: 79 Year
  Sex: Male
  Weight: 60 kg

DRUGS (3)
  1. VANCOMYCIN HYDROCHLORIDE INJ. 1G ^PFIZER^ [Suspect]
     Active Substance: VANCOMYCIN HYDROCHLORIDE
     Dosage: UNK UNK, QD
     Route: 041
     Dates: start: 20210301, end: 20210308
  2. CEFAZOLIN SODIUM. [Concomitant]
     Active Substance: CEFAZOLIN SODIUM
     Indication: ANTIBIOTIC PROPHYLAXIS
     Dosage: 1 GRAM, QD
     Route: 042
     Dates: start: 20210225, end: 20210225
  3. VANCOMYCIN HYDROCHLORIDE INJ. 1G ^PFIZER^ [Suspect]
     Active Substance: VANCOMYCIN HYDROCHLORIDE
     Indication: STAPHYLOCOCCAL INFECTION
     Dosage: 1 GRAM, QD
     Route: 041
     Dates: start: 20210224, end: 20210225

REACTIONS (1)
  - Liver disorder [Recovered/Resolved]

NARRATIVE: CASE EVENT DATE: 20210301
